FAERS Safety Report 19019221 (Version 1)
Quarter: 2021Q1

REPORT INFORMATION
  Report Type: Spontaneous
  Country: US (occurrence: US)
  Receive Date: 20210316
  Receipt Date: 20210316
  Transmission Date: 20210420
  Serious: No
  Sender: FDA-Public Use
  Company Number: None

PATIENT
  Age: 64 Year
  Sex: Male

DRUGS (12)
  1. METOPROLOL SUCCINATE. [Concomitant]
     Active Substance: METOPROLOL SUCCINATE
  2. PROLIA [Concomitant]
     Active Substance: DENOSUMAB
  3. CENTRON SILVER [Concomitant]
  4. MUPIRIAN [Concomitant]
  5. CYCLOBENZAPRINE. [Concomitant]
     Active Substance: CYCLOBENZAPRINE
  6. ELIQUIS [Concomitant]
     Active Substance: APIXABAN
  7. OLMESARTAN/HCTZ [Concomitant]
     Active Substance: HYDROCHLOROTHIAZIDE\OLMESARTAN MEDOXOMIL
  8. OXYCODONE [Concomitant]
     Active Substance: OXYCODONE
  9. GABAPENTIN. [Concomitant]
     Active Substance: GABAPENTIN
  10. LORAZEPAM. [Concomitant]
     Active Substance: LORAZEPAM
  11. DAPTOMYCIN. [Concomitant]
     Active Substance: DAPTOMYCIN
  12. SYMTUZA [Suspect]
     Active Substance: COBICISTAT\DARUNAVIR\EMTRICITABINE\TENOFOVIR ALAFENAMIDE
     Indication: HIV INFECTION
     Route: 048
     Dates: start: 20210106

REACTIONS (4)
  - Drug hypersensitivity [None]
  - Acne [None]
  - Onychomadesis [None]
  - Urticaria [None]

NARRATIVE: CASE EVENT DATE: 20210228
